FAERS Safety Report 9708795 (Version 1)
Quarter: 2013Q4

REPORT INFORMATION
  Report Type: Other
  Country: PT (occurrence: PT)
  Receive Date: 20131125
  Receipt Date: 20131125
  Transmission Date: 20140711
  Serious: Yes (Hospitalization)
  Sender: FDA-Public Use
  Company Number: PT-BRISTOL-MYERS SQUIBB COMPANY-19848316

PATIENT
  Age: 83 Year
  Sex: Female

DRUGS (3)
  1. METFORMIN HCL [Suspect]
  2. DABIGATRAN ETEXILATE [Suspect]
     Indication: ANTICOAGULANT THERAPY
     Route: 048
  3. AMIODARONE [Concomitant]

REACTIONS (9)
  - Mouth haemorrhage [Unknown]
  - Vessel puncture site bruise [Unknown]
  - Anaemia [Unknown]
  - Leukocytosis [Unknown]
  - Thrombocytopenia [Unknown]
  - Renal impairment [Unknown]
  - Fatigue [Unknown]
  - Haematochezia [Unknown]
  - Overdose [Unknown]
